FAERS Safety Report 11850470 (Version 1)
Quarter: 2015Q4

REPORT INFORMATION
  Report Type: Spontaneous
  Country: US (occurrence: US)
  Receive Date: 20151218
  Receipt Date: 20151218
  Transmission Date: 20160305
  Serious: No
  Sender: FDA-Public Use
  Company Number: US-JNJFOC-20151119673

PATIENT
  Age: 30 Year
  Sex: Female
  Weight: 92.99 kg

DRUGS (6)
  1. SUDAFED 12 HOUR [Suspect]
     Active Substance: PSEUDOEPHEDRINE HYDROCHLORIDE
     Indication: SINUS CONGESTION
     Dosage: EVERY 12 HOURS
     Route: 048
     Dates: start: 20151117, end: 20151118
  2. DEPLIN [Concomitant]
     Active Substance: LEVOMEFOLATE CALCIUM
     Indication: ABDOMINAL DISCOMFORT
     Dosage: EVERYDAY
     Route: 065
  3. ASCORBIC ACID W/BIOTIN/MINERALS NOS/NICOTINIC [Concomitant]
     Indication: NUTRITIONAL SUPPLEMENTATION
     Route: 065
  4. KEPPRA [Concomitant]
     Active Substance: LEVETIRACETAM
     Indication: EPILEPSY
     Route: 065
  5. SUDAFED 12 HOUR [Suspect]
     Active Substance: PSEUDOEPHEDRINE HYDROCHLORIDE
     Route: 048
  6. INSULIN [Concomitant]
     Active Substance: INSULIN NOS
     Indication: DIABETES MELLITUS
     Dosage: HUMALOG INSULIN: AS NEEDED
     Route: 065

REACTIONS (2)
  - Blood glucose increased [Recovering/Resolving]
  - Exposure during pregnancy [Unknown]

NARRATIVE: CASE EVENT DATE: 20151117
